FAERS Safety Report 16268804 (Version 1)
Quarter: 2019Q2

REPORT INFORMATION
  Report Type: Spontaneous
  Country: US (occurrence: US)
  Receive Date: 20190503
  Receipt Date: 20190503
  Transmission Date: 20190711
  Serious: Yes (Hospitalization, Other)
  Sender: FDA-Public Use
  Company Number: US-ELI_LILLY_AND_COMPANY-US201904013998

PATIENT
  Sex: Female

DRUGS (1)
  1. EMGALITY [Suspect]
     Active Substance: GALCANEZUMAB-GNLM
     Indication: MIGRAINE
     Dosage: 120 MG
     Route: 058
     Dates: start: 20190422

REACTIONS (16)
  - Aptyalism [Unknown]
  - Myalgia [Unknown]
  - Migraine [Unknown]
  - Dyspnoea [Unknown]
  - Trismus [Unknown]
  - Hypertension [Unknown]
  - Chest pain [Unknown]
  - Chest discomfort [Unknown]
  - Dry mouth [Unknown]
  - Dysgeusia [Unknown]
  - Insomnia [Unknown]
  - Jaw disorder [Unknown]
  - Swelling face [Unknown]
  - Swelling [Unknown]
  - Incorrect dose administered [Unknown]
  - Drug ineffective [Unknown]

NARRATIVE: CASE EVENT DATE: 20190422
